FAERS Safety Report 5488530-5 (Version None)
Quarter: 2007Q3

REPORT INFORMATION
  Report Type: 
  Country: None (occurrence: None)
  Receive Date: 20070925
  Receipt Date: 20070724
  Transmission Date: 20080115
  Serious: No
  Sender: FDA-Public Use
  Company Number: 2007US001712

PATIENT
  Age: 63 Year
  Sex: Female

DRUGS (22)
  1. VESICARE [Suspect]
     Indication: NEUROGENIC BLADDER
     Dosage: 5 MG, ORAL
     Route: 048
     Dates: start: 20070613
  2. COUMADIN [Concomitant]
  3. COREG [Concomitant]
  4. POTASSIUM (POTASSIUM CHLORIDE) [Concomitant]
  5. CRESTOR [Concomitant]
  6. PREVACID [Concomitant]
  7. GLYCOLAX (MACROGOL) [Concomitant]
  8. SYNTHROID [Concomitant]
  9. TRIAM [Concomitant]
  10. LASIX [Concomitant]
  11. OMEGA 3 (FISH OIL) [Concomitant]
  12. CYMBALTA [Concomitant]
  13. LIBRIUM [Concomitant]
  14. BUPROPION HCL [Concomitant]
  15. BACLOFEN [Concomitant]
  16. DARVOCET (DEXTROPROPOXYPHENE NAPSILATE) [Concomitant]
  17. MECLOCELIN (AMBROXOL HYDROCHLORIDE) [Concomitant]
  18. SINGULAIR [Concomitant]
  19. NASACORT [Concomitant]
  20. ASCORBIC ACID [Concomitant]
  21. CALCIUM (CALCIUM) [Concomitant]
  22. MULTIVITAMIN [Concomitant]

REACTIONS (2)
  - BODY TEMPERATURE INCREASED [None]
  - ROAD TRAFFIC ACCIDENT [None]
